FAERS Safety Report 24348113 (Version 1)
Quarter: 2024Q3

REPORT INFORMATION
  Report Type: Spontaneous
  Country: GB (occurrence: GB)
  Receive Date: 20240923
  Receipt Date: 20240923
  Transmission Date: 20241017
  Serious: Yes (Hospitalization, Other)
  Sender: NOVO NORDISK
  Company Number: None

PATIENT
  Age: 49 Year
  Sex: Male
  Weight: 132 kg

DRUGS (1)
  1. RYBELSUS [Suspect]
     Active Substance: SEMAGLUTIDE
     Indication: Diabetes mellitus
     Dosage: 14 MG, QD (MORNING)

REACTIONS (5)
  - Acute kidney injury [Recovering/Resolving]
  - Gastroenteritis [Recovering/Resolving]
  - Cellulitis [Unknown]
  - Sepsis [Unknown]
  - Organ failure [Unknown]
